FAERS Safety Report 7243405-6 (Version None)
Quarter: 2011Q1

REPORT INFORMATION
  Report Type: 
  Country: None (occurrence: None)
  Receive Date: 20110125
  Receipt Date: 20110111
  Transmission Date: 20110831
  Serious: Yes (Other)
  Sender: FDA-Public Use
  Company Number: FR-ELI_LILLY_AND_COMPANY-FR201011006888

PATIENT
  Sex: Male
  Weight: 80 kg

DRUGS (9)
  1. EFFIENT [Suspect]
     Indication: ACUTE CORONARY SYNDROME
     Dosage: 10 MG, UNKNOWN
     Route: 048
     Dates: start: 20101116
  2. CARDENSIEL [Concomitant]
     Indication: HYPERTENSION
     Dosage: 5 MG, UNKNOWN
     Route: 048
  3. AMIODARONE [Concomitant]
     Dosage: UNK, UNKNOWN
     Route: 065
     Dates: start: 20101116
  4. KARDEGIC [Concomitant]
     Dosage: UNK, UNKNOWN
     Route: 065
  5. CONTRAST MEDIA [Concomitant]
  6. CORDARONE [Concomitant]
     Indication: ATRIAL FIBRILLATION
     Dosage: 250 MG, UNK
     Route: 048
     Dates: start: 20101116
  7. TAHOR [Concomitant]
     Dosage: UNK, UNKNOWN
     Route: 065
  8. COVERSYL [Concomitant]
     Dosage: 10 MG, UNKNOWN
     Route: 048
  9. ASPIRIN [Concomitant]
     Indication: PROPHYLAXIS
     Dosage: 75 MG, UNK
     Route: 048

REACTIONS (2)
  - DERMATITIS EXFOLIATIVE [None]
  - DRUG DOSE OMISSION [None]
